FAERS Safety Report 7886429-8 (Version None)
Quarter: 2011Q4

REPORT INFORMATION
  Report Type: 
  Country: None (occurrence: None)
  Receive Date: 20111102
  Receipt Date: 20110705
  Transmission Date: 20120403
  Serious: No
  Sender: FDA-Public Use
  Company Number: US-AMGEN-USASP2011033890

PATIENT
  Age: 58 Year
  Sex: Female
  Weight: 29.932 kg

DRUGS (9)
  1. ENBREL [Suspect]
     Indication: PRODUCT USED FOR UNKNOWN INDICATION
     Dosage: 50 MG, QWK
     Route: 058
  2. ADVAIR DISKUS 100/50 [Concomitant]
  3. ACYCLOVIR [Concomitant]
     Dosage: 200 MG, UNK
     Route: 048
  4. XALATAN [Concomitant]
     Dosage: 0.005 %, UNK
  5. SIMVASTATIN [Concomitant]
     Dosage: 10 MG, UNK
     Route: 048
  6. KLONOPIN [Concomitant]
     Dosage: 1 MG, UNK
     Route: 048
  7. CELEBREX [Concomitant]
     Dosage: 100 MG, UNK
     Route: 048
  8. ZYRTEC [Concomitant]
     Dosage: 10 MG, UNK
     Route: 048
  9. NEXIUM [Concomitant]
     Dosage: 20 MG, UNK
     Route: 048

REACTIONS (6)
  - INJECTION SITE PRURITUS [None]
  - INJECTION SITE ERYTHEMA [None]
  - INJECTION SITE WARMTH [None]
  - INJECTION SITE SWELLING [None]
  - INJECTION SITE INDURATION [None]
  - INJECTION SITE REACTION [None]
